FAERS Safety Report 8404976 (Version 2)
Quarter: 2013Q2

REPORT INFORMATION
  Report Type: Report from Study
  Country: MX (occurrence: MX)
  Receive Date: 20120214
  Receipt Date: 20130419
  Transmission Date: 20140414
  Serious: Yes (Death, Hospitalization, Disabling, Other)
  Sender: FDA-Public Use
  Company Number: PHHY2012MX011844

PATIENT
  Age: 92 Year
  Sex: Female

DRUGS (4)
  1. DIOVAN [Suspect]
     Indication: HYPERTENSION
     Dosage: 2 DF (80MG) DAILY
     Dates: start: 200202, end: 20111107
  2. DIGOXINE [Concomitant]
     Indication: CARDIAC DISORDER
     Dosage: 0.25 MG, HALF TABLET
  3. PANTOPRAZOLE [Concomitant]
     Dosage: ONE TABLET DAILY
  4. CHLORTALIDONE [Concomitant]

REACTIONS (18)
  - Myocardial infarction [Fatal]
  - Diverticulum [Unknown]
  - Aphonia [Unknown]
  - Arteriosclerosis [Unknown]
  - Intestinal obstruction [Unknown]
  - Bronchitis chronic [Unknown]
  - Hiatus hernia [Unknown]
  - Renal disorder [Unknown]
  - Blood urea increased [Unknown]
  - Decreased appetite [Unknown]
  - Constipation [Unknown]
  - Hyperhidrosis [Unknown]
  - Melaena [Unknown]
  - Feeling abnormal [Unknown]
  - Local swelling [Unknown]
  - Chest pain [Unknown]
  - Cardiac discomfort [Unknown]
  - Asthenia [Unknown]
